FAERS Safety Report 7819286-6 (Version None)
Quarter: 2011Q4

REPORT INFORMATION
  Report Type: 
  Country: None (occurrence: None)
  Receive Date: 20111018
  Receipt Date: 20110613
  Transmission Date: 20120403
  Serious: No
  Sender: FDA-Public Use
  Company Number: US-ASTRAZENECA-2011SE35900

PATIENT
  Age: 77 Year
  Sex: Male
  Weight: 86.2 kg

DRUGS (5)
  1. TRIGLYCERIDE MEDICATION [Concomitant]
  2. SYNTHROIDS [Concomitant]
  3. DOGOXIN [Concomitant]
  4. SYMBICORT [Suspect]
     Dosage: 160/4.5 2 PUFFS BID
     Route: 055
     Dates: start: 20110601, end: 20110612
  5. PLAVIX [Concomitant]

REACTIONS (5)
  - URTICARIA [None]
  - DEVICE LEAD DAMAGE [None]
  - CHEST PAIN [None]
  - ABDOMINAL PAIN UPPER [None]
  - RASH [None]
